FAERS Safety Report 20675567 (Version 2)
Quarter: 2022Q2

REPORT INFORMATION
  Report Type: Spontaneous
  Country: US (occurrence: US)
  Receive Date: 20220405
  Receipt Date: 20220622
  Transmission Date: 20220721
  Serious: No
  Sender: FDA-Public Use
  Company Number: US-GE HEALTHCARE-2022CSU000451

PATIENT
  Sex: Male

DRUGS (9)
  1. DATSCAN [Suspect]
     Active Substance: IODINE\IOFLUPANE I-123
     Indication: Scan brain
     Dosage: 5 MCI, SINGLE
     Route: 065
     Dates: start: 20220113, end: 20220113
  2. DATSCAN [Suspect]
     Active Substance: IODINE\IOFLUPANE I-123
     Indication: Product used for unknown indication
  3. CYMBALTA [Concomitant]
     Active Substance: DULOXETINE HYDROCHLORIDE
     Dosage: 30 MG, TWICE A DAY WITH MEALS
     Route: 048
  4. XALATAN [Concomitant]
     Active Substance: LATANOPROST
     Dosage: INSTILL 1 DROP INTO BOTH EYES EVERY NIGHT AT BEDTIME
  5. TYLENOL [Concomitant]
     Active Substance: ACETAMINOPHEN
     Indication: Pain
     Dosage: 1000 MG, THREE TIMES A DAY AS NEEDED FOR PAIN
     Route: 048
  6. MIRALAX [Concomitant]
     Active Substance: POLYETHYLENE GLYCOL 3350
  7. PSYLLIUM HUSK [Concomitant]
     Active Substance: PSYLLIUM HUSK
     Indication: Constipation
     Dosage: 1 TABLESPOON MIXED IN 6 TO 8 OZ WATER DAILY AS NEEDED
     Route: 048
  8. MOTRIN [Concomitant]
     Active Substance: IBUPROFEN
     Indication: Pain
     Dosage: 400 MG TWICE A DAY AS NEEDED WITH FOOD
     Route: 048
  9. MIRABEGRON [Concomitant]
     Active Substance: MIRABEGRON
     Dosage: 50 MG, QD
     Route: 048

REACTIONS (2)
  - Drug ineffective [Recovered/Resolved]
  - No adverse event [Recovered/Resolved]

NARRATIVE: CASE EVENT DATE: 20220113
